FAERS Safety Report 18029119 (Version 2)
Quarter: 2020Q3

REPORT INFORMATION
  Report Type: Spontaneous
  Country: US (occurrence: US)
  Receive Date: 20200716
  Receipt Date: 20200930
  Transmission Date: 20201103
  Serious: Yes (Death)
  Sender: FDA-Public Use
  Company Number: US-ROCHE-2642586

PATIENT
  Age: 80 Year
  Sex: Female

DRUGS (2)
  1. RITUXAN [Suspect]
     Active Substance: RITUXIMAB
     Indication: DIFFUSE LARGE B-CELL LYMPHOMA
     Dosage: STRENGTH: 10 MG/ML, 50ML/VL
     Route: 041
     Dates: start: 20200122
  2. RITUXAN [Suspect]
     Active Substance: RITUXIMAB
     Dosage: STRENGTH: 10 MG/ML, 10ML/VL
     Route: 041
     Dates: start: 20200122

REACTIONS (1)
  - Death [Fatal]

NARRATIVE: CASE EVENT DATE: 20200327
